FAERS Safety Report 4936671-0 (Version None)
Quarter: 2006Q1

REPORT INFORMATION
  Report Type: 
  Country: None (occurrence: None)
  Receive Date: 20060127
  Receipt Date: 20051112
  Transmission Date: 20060701
  Serious: Yes (Other)
  Sender: FDA-Public Use
  Company Number: 2005155035

PATIENT
  Age: 64 Year
  Sex: Female
  Weight: 77.1115 kg

DRUGS (16)
  1. LYRICA [Suspect]
     Indication: NEUROPATHY
     Dosage: 300 MG (100 MG, 3 IN 1 D), ORAL
     Route: 048
     Dates: start: 20050920
  2. CEFUROXIME [Suspect]
     Indication: ILL-DEFINED DISORDER
     Dosage: 250 MG
     Route: 065
     Dates: start: 20051103, end: 20051101
  3. METFORMIN HCL [Concomitant]
  4. ACTOS [Concomitant]
  5. TIAZAC [Concomitant]
  6. COZAAR [Concomitant]
  7. SYNTHROID [Concomitant]
  8. FEMARA [Concomitant]
  9. CITALOPRAM (CITALOPRAM) [Concomitant]
  10. PLAVIX [Concomitant]
  11. LIPITOR [Concomitant]
  12. TRICOR [Concomitant]
  13. NEXIUM [Concomitant]
  14. ALL OTHER THERAPEUTIC PRODUCTS (ALL OTHER THERAPEUTIC PRODUCTS) [Concomitant]
  15. ATROVENT [Concomitant]
  16. QVAR (BECLOMETASONE DIPROPIONATE) [Concomitant]

REACTIONS (4)
  - COUGH [None]
  - DYSPNOEA [None]
  - HYPOVENTILATION [None]
  - WHEEZING [None]
